FAERS Safety Report 16907386 (Version 3)
Quarter: 2020Q1

REPORT INFORMATION
  Report Type: Spontaneous
  Country: NL (occurrence: NL)
  Receive Date: 20191011
  Receipt Date: 20200121
  Transmission Date: 20200409
  Serious: Yes (Other)
  Sender: FDA-Public Use
  Company Number: NL-TEVA-2019-NL-1119422

PATIENT
  Age: 50 Year
  Sex: Male
  Weight: 96 kg

DRUGS (2)
  1. METOPROLOL 50MG [Concomitant]
     Active Substance: METOPROLOL
     Dosage: 1X A DAY 2
     Dates: end: 201908
  2. LISINOPRIL TABLET, 10 MG (MILLIGRAM) [Suspect]
     Active Substance: LISINOPRIL
     Indication: HYPERTENSION
     Dosage: 1X A DAY 1
     Dates: start: 20190608

REACTIONS (8)
  - Nausea [Recovered/Resolved]
  - Dizziness [Recovered/Resolved]
  - Arrhythmia [Not Recovered/Not Resolved]
  - Anxiety [Recovered/Resolved]
  - Malaise [Recovered/Resolved]
  - Palpitations [Recovered/Resolved]
  - Depressed mood [Recovered/Resolved]
  - Stress [Recovered/Resolved]

NARRATIVE: CASE EVENT DATE: 20190609
